FAERS Safety Report 7909382-7 (Version None)
Quarter: 2011Q4

REPORT INFORMATION
  Report Type: 
  Country: None (occurrence: None)
  Receive Date: 20111111
  Receipt Date: 20111021
  Transmission Date: 20120403
  Serious: No
  Sender: FDA-Public Use
  Company Number: US-ROXANE LABORATORIES, INC.-2011-RO-01457RO

PATIENT
  Age: 63 Year
  Sex: Female

DRUGS (2)
  1. VITAMIN D [Concomitant]
     Indication: VITAMIN D DEFICIENCY
     Dosage: 4000 U
  2. MORPHINE [Suspect]
     Indication: BACK PAIN
     Route: 048

REACTIONS (5)
  - HYPERHIDROSIS [None]
  - CONSTIPATION [None]
  - OEDEMA [None]
  - MUSCLE RIGIDITY [None]
  - PRURITUS [None]
